FAERS Safety Report 19432076 (Version 1)
Quarter: 2021Q2

REPORT INFORMATION
  Report Type: Report from Study
  Country: GB (occurrence: GB)
  Receive Date: 20210618
  Receipt Date: 20210618
  Transmission Date: 20210717
  Serious: Yes (Hospitalization, Other)
  Sender: FDA-Public Use
  Company Number: GB-ACCORD-228439

PATIENT
  Age: 62 Year
  Sex: Female

DRUGS (91)
  1. TRASTUZUMAB/EMTANSINE [Suspect]
     Active Substance: ADO-TRASTUZUMAB EMTANSINE
     Indication: BREAST CANCER
     Route: 042
     Dates: start: 20181019, end: 20190927
  2. RANITIDINE. [Concomitant]
     Active Substance: RANITIDINE
     Route: 048
     Dates: start: 20180212
  3. SILVER NITRATE. [Concomitant]
     Active Substance: SILVER NITRATE
     Route: 061
     Dates: start: 20190522, end: 20190522
  4. SUGAMMADEX [Concomitant]
     Active Substance: SUGAMMADEX
     Route: 042
     Dates: start: 20181220, end: 20181220
  5. COLECALCIFEROL [Concomitant]
     Active Substance: CHOLECALCIFEROL
     Route: 048
     Dates: start: 20180926
  6. SODIUM CHLORIDE. [Concomitant]
     Active Substance: SODIUM CHLORIDE
     Indication: GASTROINTESTINAL HAEMORRHAGE
     Dosage: 500 ML
     Route: 042
     Dates: start: 20190523, end: 20190523
  7. HEPARIN [Concomitant]
     Active Substance: HEPARIN SODIUM
     Indication: PROPHYLAXIS
     Dosage: 5 ML
     Route: 042
     Dates: start: 20190502, end: 20191106
  8. ONDANSETRON [Concomitant]
     Active Substance: ONDANSETRON
     Dosage: AS NEEDED
     Route: 042
     Dates: start: 20181119, end: 20181122
  9. PARACETAMOL [Concomitant]
     Active Substance: ACETAMINOPHEN
     Dosage: AS NEEDED
     Route: 048
     Dates: start: 20181003
  10. VANCOMYCIN [Concomitant]
     Active Substance: VANCOMYCIN
     Route: 042
     Dates: start: 20181120, end: 20181122
  11. GENTAMICIN. [Concomitant]
     Active Substance: GENTAMICIN
     Route: 042
     Dates: start: 20190526, end: 20190526
  12. ONDANSETRON [Concomitant]
     Active Substance: ONDANSETRON
     Dosage: AS NEEDED
     Route: 048
     Dates: start: 20181216, end: 20190107
  13. ONDANSETRON [Concomitant]
     Active Substance: ONDANSETRON
     Dosage: AS NEEDED
     Route: 048
     Dates: start: 20200214, end: 20200214
  14. RANITIDINE. [Concomitant]
     Active Substance: RANITIDINE
     Dates: start: 20181123, end: 20181123
  15. RANITIDINE. [Concomitant]
     Active Substance: RANITIDINE
     Dosage: TAKEN PRIOR TO STUDY
     Route: 042
     Dates: start: 20180202
  16. PARACETAMOL [Concomitant]
     Active Substance: ACETAMINOPHEN
     Route: 048
     Dates: start: 20180916, end: 20181002
  17. PENTASA [Concomitant]
     Active Substance: MESALAMINE
     Indication: CROHN^S DISEASE
     Dosage: SACHETS
     Route: 048
     Dates: start: 20131217, end: 20180730
  18. TEICOPLANIN [Concomitant]
     Active Substance: TEICOPLANIN
     Route: 065
     Dates: start: 20181220, end: 20181224
  19. HYDROCORTISONE. [Concomitant]
     Active Substance: HYDROCORTISONE
     Dosage: AS NEEDED
     Route: 061
     Dates: start: 20180605
  20. DOXYCYCLINE. [Concomitant]
     Active Substance: DOXYCYCLINE
     Route: 048
     Dates: start: 20181113, end: 20181113
  21. GENTAMICIN. [Concomitant]
     Active Substance: GENTAMICIN
     Route: 011
     Dates: start: 20190911, end: 20190911
  22. PENTASA [Concomitant]
     Active Substance: MESALAMINE
     Route: 048
     Dates: start: 20180730
  23. CODEINE PHOSPHATE/PARACETAMOL [Concomitant]
     Active Substance: ACETAMINOPHEN\CODEINE PHOSPHATE
     Dosage: 30/500 MG FORM STRENGTH
     Route: 065
     Dates: start: 20030104, end: 20180225
  24. METRONIDAZOLE. [Concomitant]
     Active Substance: METRONIDAZOLE
     Route: 048
     Dates: start: 20190916, end: 20190916
  25. QUININE [Concomitant]
     Active Substance: QUININE
     Route: 048
     Dates: start: 20040219
  26. RED BLOOD CELLS/RED BLOOD CELLS/CONCENTRATED/RED BLOOD CELLS/LEUCOCYTE DEP [Concomitant]
     Indication: GASTROINTESTINAL HAEMORRHAGE
     Dosage: 3 UNIT
     Route: 042
     Dates: start: 20190523, end: 20190524
  27. TRIMETHOPRIM. [Concomitant]
     Active Substance: TRIMETHOPRIM
     Route: 048
     Dates: start: 20190813, end: 20190815
  28. BENZYDAMINE [Concomitant]
     Active Substance: BENZYDAMINE
     Dosage: MOUTHWASH?5 ML
     Route: 065
     Dates: start: 20180414
  29. CHLORPHENAMINE/CHLORPHENAMINE MALEATE/CHLORPHENAMINE RESINATE/CHLORPHENAMINE TANNATE [Concomitant]
     Active Substance: CHLORPHENIRAMINE
     Route: 048
     Dates: start: 20190909, end: 20190915
  30. FEXOFENADINE [Concomitant]
     Active Substance: FEXOFENADINE HYDROCHLORIDE
     Indication: PRURITUS
     Route: 048
     Dates: start: 20190403, end: 20190403
  31. HYDROXOCOBALAMIN [Concomitant]
     Active Substance: HYDROXOCOBALAMIN
     Dosage: 1 MG/1 ML
     Route: 030
     Dates: start: 20020115
  32. METRONIDAZOLE. [Concomitant]
     Active Substance: METRONIDAZOLE
     Route: 042
     Dates: start: 20190526
  33. SILVER NITRATE. [Concomitant]
     Active Substance: SILVER NITRATE
     Dosage: 1 UNIT
     Route: 061
     Dates: start: 20180329, end: 20180329
  34. VANCOMYCIN [Concomitant]
     Active Substance: VANCOMYCIN
     Indication: SEPSIS
     Route: 042
     Dates: start: 20181119, end: 20181119
  35. GENTAMICIN. [Concomitant]
     Active Substance: GENTAMICIN
     Route: 042
     Dates: start: 20181119, end: 20181119
  36. GENTAMICIN. [Concomitant]
     Active Substance: GENTAMICIN
     Route: 042
     Dates: start: 20190528, end: 20190528
  37. METOCLOPRAMIDE. [Concomitant]
     Active Substance: METOCLOPRAMIDE
     Route: 048
     Dates: start: 20190909, end: 20190909
  38. PARACETAMOL [Concomitant]
     Active Substance: ACETAMINOPHEN
     Route: 042
     Dates: start: 20181220, end: 20181220
  39. OMEPRAZOLE. [Concomitant]
     Active Substance: OMEPRAZOLE
     Route: 048
     Dates: start: 20091014
  40. LETROZOLE. [Suspect]
     Active Substance: LETROZOLE
     Indication: PRODUCT USED FOR UNKNOWN INDICATION
     Route: 048
     Dates: start: 20180525, end: 20181011
  41. AMOXICILLIN. [Concomitant]
     Active Substance: AMOXICILLIN
     Route: 042
     Dates: start: 20190911, end: 20190915
  42. CHLORHEXIDINE [Concomitant]
     Active Substance: CHLORHEXIDINE
     Dosage: AS NEEDED??10 ML
     Route: 065
     Dates: start: 20181019
  43. DOXAZOSIN [Concomitant]
     Active Substance: DOXAZOSIN MESYLATE
     Route: 048
     Dates: start: 20040816
  44. METOCLOPRAMIDE. [Concomitant]
     Active Substance: METOCLOPRAMIDE
     Dosage: AS NEEDED
     Route: 048
     Dates: start: 201910
  45. METRONIDAZOLE. [Concomitant]
     Active Substance: METRONIDAZOLE
     Route: 042
     Dates: start: 20180911, end: 20180915
  46. ONDANSETRON [Concomitant]
     Active Substance: ONDANSETRON
     Dosage: AS NEEDED
     Route: 048
     Dates: start: 20190920, end: 20190920
  47. RED BLOOD CELLS/RED BLOOD CELLS/CONCENTRATED/RED BLOOD CELLS/LEUCOCYTE DEP [Concomitant]
     Indication: HAEMORRHAGE
     Route: 042
     Dates: start: 20190511, end: 20190511
  48. PACLITAXEL/PACLITAXEL LIPOSOME [Suspect]
     Active Substance: PACLITAXEL
     Indication: BREAST CANCER
     Route: 042
     Dates: start: 20180202, end: 20180518
  49. VANCOMYCIN [Concomitant]
     Active Substance: VANCOMYCIN
     Route: 042
     Dates: start: 20190526, end: 20190526
  50. ZOLEDRONIC ACID [Concomitant]
     Active Substance: ZOLEDRONIC ACID
     Indication: METASTASES TO BONE
     Route: 042
     Dates: start: 20181019
  51. BENDROFLUMETHIAZIDE [Concomitant]
     Active Substance: BENDROFLUMETHIAZIDE
     Route: 048
     Dates: start: 20190908
  52. CODEINE PHOSPHATE/PARACETAMOL [Concomitant]
     Active Substance: ACETAMINOPHEN\CODEINE PHOSPHATE
     Route: 065
     Dates: start: 20180302
  53. TOLNAFTATE. [Concomitant]
     Active Substance: TOLNAFTATE
     Route: 061
     Dates: start: 20181220, end: 20190116
  54. FLUCONAZOLE. [Concomitant]
     Active Substance: FLUCONAZOLE
     Route: 048
     Dates: start: 20180125
  55. FOLIC ACID. [Concomitant]
     Active Substance: FOLIC ACID
     Route: 048
     Dates: start: 20030207
  56. GLUCOSE/GLUCOSE MONOHYDRATE/GLUCOSE OXIDASE [Concomitant]
     Active Substance: DEXTROSE
     Indication: GASTROINTESTINAL HAEMORRHAGE
     Dosage: 1000 ML
     Route: 042
     Dates: start: 20190525, end: 20190525
  57. METRONIDAZOLE. [Concomitant]
     Active Substance: METRONIDAZOLE
     Indication: SEPSIS
     Route: 042
     Dates: start: 20181119, end: 20181121
  58. SODIUM CHLORIDE. [Concomitant]
     Active Substance: SODIUM CHLORIDE
     Dosage: 500 ML
     Route: 042
     Dates: start: 20181122, end: 20181123
  59. SODIUM CHLORIDE. [Concomitant]
     Active Substance: SODIUM CHLORIDE
     Dosage: 500 ML
     Route: 042
     Dates: start: 20181123, end: 20181123
  60. TRANEXAMIC ACID. [Concomitant]
     Active Substance: TRANEXAMIC ACID
     Route: 048
     Dates: start: 20190804, end: 20190806
  61. ADCAL?D3 [Concomitant]
     Active Substance: CALCIUM CARBONATE\CHOLECALCIFEROL
     Route: 048
     Dates: start: 20140127
  62. CIPROFLOXACIN. [Concomitant]
     Active Substance: CIPROFLOXACIN
     Route: 048
     Dates: start: 201910, end: 20191009
  63. CLARITHROMYCIN. [Concomitant]
     Active Substance: CLARITHROMYCIN
     Route: 048
     Dates: start: 20190717, end: 20190724
  64. OMEPRAZOLE. [Concomitant]
     Active Substance: OMEPRAZOLE
     Route: 048
     Dates: start: 20191107, end: 20200205
  65. PARACETAMOL [Concomitant]
     Active Substance: ACETAMINOPHEN
     Indication: OEDEMA
     Route: 048
     Dates: start: 20180225, end: 20180301
  66. SODIUM CHLORIDE. [Concomitant]
     Active Substance: SODIUM CHLORIDE
     Indication: GASTROINTESTINAL HAEMORRHAGE
     Dosage: 500 ML
     Route: 042
     Dates: start: 20190522, end: 20190522
  67. SILVER NITRATE. [Concomitant]
     Active Substance: SILVER NITRATE
     Indication: HAEMORRHAGE
     Route: 061
     Dates: start: 20190510, end: 20190510
  68. SILVER NITRATE. [Concomitant]
     Active Substance: SILVER NITRATE
     Route: 061
     Dates: start: 20190730, end: 20190730
  69. CHLORPHENAMINE/CHLORPHENAMINE MALEATE/CHLORPHENAMINE RESINATE/CHLORPHENAMINE TANNATE [Concomitant]
     Active Substance: CHLORPHENIRAMINE
     Dosage: TAKEN PRIOR TO STUDY
     Route: 042
     Dates: start: 20180202
  70. COLECALCIFEROL [Concomitant]
     Active Substance: CHOLECALCIFEROL
     Route: 048
     Dates: start: 20180920
  71. DOXAZOSIN [Concomitant]
     Active Substance: DOXAZOSIN MESYLATE
     Route: 048
     Dates: start: 20190908
  72. PIRITON [Concomitant]
     Active Substance: CHLORPHENIRAMINE MALEATE
     Route: 048
     Dates: start: 20180125
  73. TERBUTALINE [Concomitant]
     Active Substance: TERBUTALINE
     Dosage: 200 MICROGRAM
     Route: 055
     Dates: start: 20030108
  74. CARMELLOSE [Concomitant]
     Active Substance: CARBOXYMETHYLCELLULOSE
     Route: 061
     Dates: start: 20181220, end: 20190116
  75. CETIRIZINE [Concomitant]
     Active Substance: CETIRIZINE HYDROCHLORIDE
     Dosage: 10 MICROGRAM
     Route: 048
     Dates: start: 20080430
  76. CYCLIZINE [Concomitant]
     Active Substance: CYCLIZINE
     Route: 048
     Dates: start: 20181102
  77. EUMOVATE [Concomitant]
     Active Substance: CLOBETASONE BUTYRATE
     Indication: SKIN ABRASION
  78. IRON [Concomitant]
     Active Substance: IRON
     Route: 048
     Dates: start: 20190730
  79. METOCLOPRAMIDE. [Concomitant]
     Active Substance: METOCLOPRAMIDE
     Dosage: TAKEN PRIOR TO STUDY
     Route: 048
     Dates: start: 20180202
  80. EUMOVATE [Concomitant]
     Active Substance: CLOBETASONE BUTYRATE
     Indication: PRURITUS
     Dates: start: 20190403
  81. BENDROFLUMETHIAZIDE [Concomitant]
     Active Substance: BENDROFLUMETHIAZIDE
     Route: 048
     Dates: start: 20030114
  82. DOXYCYCLINE. [Concomitant]
     Active Substance: DOXYCYCLINE
     Route: 048
     Dates: start: 20181114, end: 20181119
  83. TRASTUZUMAB. [Suspect]
     Active Substance: TRASTUZUMAB
     Indication: BREAST CANCER
     Route: 058
     Dates: start: 20180202, end: 20180827
  84. CLOTRIMAZOLE. [Concomitant]
     Active Substance: CLOTRIMAZOLE
     Route: 061
     Dates: start: 20180125
  85. AMOXICILLIN SODIUM/CLAVULANATE POTASSIUM [Concomitant]
     Active Substance: AMOXICILLIN\CLAVULANATE POTASSIUM
     Route: 048
     Dates: start: 20190915, end: 20190916
  86. SILVER NITRATE. [Concomitant]
     Active Substance: SILVER NITRATE
     Route: 061
     Dates: start: 20190527, end: 20190527
  87. VANCOMYCIN [Concomitant]
     Active Substance: VANCOMYCIN
     Route: 042
     Dates: start: 20190527
  88. LETROZOLE. [Suspect]
     Active Substance: LETROZOLE
     Indication: BREAST CANCER
     Route: 048
     Dates: start: 20180119, end: 20180126
  89. FEXOFENADINE [Concomitant]
     Active Substance: FEXOFENADINE HYDROCHLORIDE
     Indication: SKIN ABRASION
     Route: 048
     Dates: start: 201910, end: 20191119
  90. GENTAMICIN. [Concomitant]
     Active Substance: GENTAMICIN
     Route: 042
     Dates: start: 20190913, end: 20190913
  91. METRONIDAZOLE. [Concomitant]
     Active Substance: METRONIDAZOLE
     Route: 042
     Dates: start: 20181122, end: 20181123

REACTIONS (9)
  - Vomiting [Recovered/Resolved]
  - Oedema peripheral [Recovered/Resolved]
  - Arthralgia [Not Recovered/Not Resolved]
  - Diarrhoea [Recovered/Resolved]
  - Cancer pain [Recovered/Resolved]
  - C-reactive protein increased [Recovered/Resolved]
  - Bone pain [Recovered/Resolved]
  - Wound [Recovered/Resolved]
  - Mucosal inflammation [Recovered/Resolved]

NARRATIVE: CASE EVENT DATE: 20180225
